FAERS Safety Report 4740328-9 (Version None)
Quarter: 2005Q3

REPORT INFORMATION
  Report Type: 
  Country: None (occurrence: None)
  Receive Date: 20050809
  Receipt Date: 20050809
  Transmission Date: 20060218
  Serious: Yes (Other)
  Sender: FDA-Public Use
  Company Number: None

PATIENT
  Sex: Female
  Weight: 68.0396 kg

DRUGS (1)
  1. LEVOXYL [Suspect]
     Indication: THYROID DISORDER
     Dosage: ONCE DAILY ORAL
     Route: 048

REACTIONS (3)
  - ARTHRALGIA [None]
  - DRY SKIN [None]
  - SKIN EXFOLIATION [None]
